FAERS Safety Report 7425235-5 (Version None)
Quarter: 2011Q1

REPORT INFORMATION
  Report Type: 
  Country: None (occurrence: None)
  Receive Date: 20110302
  Receipt Date: 20101222
  Transmission Date: 20110831
  Serious: No
  Sender: FDA-Public Use
  Company Number: 024339

PATIENT
  Sex: Female
  Weight: 95.3 kg

DRUGS (5)
  1. CIMZIA [Suspect]
     Dosage: (400 MG 1X/4 WEEKS, PFS (PRE FILLED SYRINGE) SUBCUTANEOUS)
     Route: 058
     Dates: start: 20101103
  2. FOLIC ACID [Concomitant]
  3. MERCAPTOPURINE [Concomitant]
  4. MULTI-VITAMINS [Concomitant]
  5. PENTASA [Concomitant]

REACTIONS (6)
  - FATIGUE [None]
  - CROHN'S DISEASE [None]
  - ABDOMINAL PAIN [None]
  - HYPERSOMNIA [None]
  - INTESTINAL STENOSIS [None]
  - INJECTION SITE REACTION [None]
